FAERS Safety Report 6512179-6 (Version None)
Quarter: 2009Q4

REPORT INFORMATION
  Report Type: 
  Country: None (occurrence: None)
  Receive Date: 20091217
  Receipt Date: 20091214
  Transmission Date: 20100525
  Serious: Yes (Hospitalization, Other)
  Sender: FDA-Public Use
  Company Number: WAES 0911USA02750

PATIENT
  Age: 60 Year
  Sex: Female
  Weight: 40.8237 kg

DRUGS (3)
  1. CAP VORINOSTAT UNK [Suspect]
     Indication: PROPHYLAXIS
     Dosage: PO
     Route: 048
     Dates: end: 20090820
  2. TACROLIMUS [Suspect]
     Indication: PROPHYLAXIS
     Dosage: /PO
     Route: 048
  3. MYCOPHENOLATE SODIUM UNK [Suspect]
     Indication: PROPHYLAXIS

REACTIONS (18)
  - ABSCESS INTESTINAL [None]
  - ACUTE GRAFT VERSUS HOST DISEASE IN INTESTINE [None]
  - APOPTOSIS [None]
  - CULTURE POSITIVE [None]
  - CYTOMEGALOVIRUS INFECTION [None]
  - DECREASED APPETITE [None]
  - DRUG DOSE OMISSION [None]
  - DRUG INTOLERANCE [None]
  - ENTEROCOCCAL INFECTION [None]
  - ESCHERICHIA INFECTION [None]
  - GRAFT VERSUS HOST DISEASE [None]
  - HYPOPHAGIA [None]
  - INTERVERTEBRAL DISC COMPRESSION [None]
  - LOCALISED INTRAABDOMINAL FLUID COLLECTION [None]
  - NAUSEA [None]
  - OSTEOPOROSIS [None]
  - RIB FRACTURE [None]
  - SIGNET-RING CELL CARCINOMA [None]
